FAERS Safety Report 18456343 (Version 2)
Quarter: 2020Q4

REPORT INFORMATION
  Report Type: Report from Study
  Country: US (occurrence: US)
  Receive Date: 20201103
  Receipt Date: 20201111
  Transmission Date: 20210114
  Serious: Yes (Other)
  Sender: FDA-Public Use
  Company Number: US-PFIZER INC-2020421414

PATIENT
  Age: 24 Year
  Sex: Female

DRUGS (2)
  1. PROMETHAZINE [Suspect]
     Active Substance: PROMETHAZINE HYDROCHLORIDE
     Dosage: UNK (TOTAL: 75 MG)
  2. MEPERIDINE HCL [Suspect]
     Active Substance: MEPERIDINE HYDROCHLORIDE
     Indication: SICKLE CELL DISEASE
     Dosage: 100 MG (Q2H, TOTAL DOSE: 2.2 G, DURATION: 48 HR)
     Route: 042

REACTIONS (1)
  - Generalised tonic-clonic seizure [Unknown]
